FAERS Safety Report 8987258 (Version 2)
Quarter: 2013Q1

REPORT INFORMATION
  Report Type: Spontaneous
  Country: US (occurrence: US)
  Receive Date: 20121227
  Receipt Date: 20130221
  Transmission Date: 20140127
  Serious: Yes (Other)
  Sender: FDA-Public Use
  Company Number: US-ELI_LILLY_AND_COMPANY-US201212005767

PATIENT
  Sex: Male

DRUGS (2)
  1. HUMALOG 25% LISPRO, 75% NPL [Suspect]
     Dosage: 30 U, EACH MORNING
  2. HUMALOG 25% LISPRO, 75% NPL [Suspect]
     Dosage: 20 U, EACH EVENING

REACTIONS (5)
  - Nerve injury [Unknown]
  - Glaucoma [Unknown]
  - Viral infection [Unknown]
  - Conjunctivitis infective [Unknown]
  - Visual impairment [Not Recovered/Not Resolved]
